FAERS Safety Report 5813288-7 (Version None)
Quarter: 2008Q3

REPORT INFORMATION
  Report Type: 
  Country: None (occurrence: None)
  Receive Date: 20080717
  Receipt Date: 20080715
  Transmission Date: 20090109
  Serious: Yes (Other)
  Sender: FDA-Public Use
  Company Number: BE-JNJFOC-20080703445

PATIENT
  Age: 62 Year
  Sex: Female

DRUGS (4)
  1. TAVANIC [Suspect]
     Indication: HELICOBACTER GASTRITIS
     Route: 048
  2. CEFUROXIME [Concomitant]
     Indication: HELICOBACTER GASTRITIS
     Route: 048
  3. SERLAIN [Concomitant]
     Route: 048
  4. LORMETAZEPAM [Concomitant]
     Route: 048

REACTIONS (2)
  - EAR HAEMORRHAGE [None]
  - HYPERTENSION [None]
